FAERS Safety Report 7102603-2 (Version None)
Quarter: 2010Q4

REPORT INFORMATION
  Report Type: 
  Country: None (occurrence: None)
  Receive Date: 20101115
  Receipt Date: 20101108
  Transmission Date: 20110411
  Serious: Yes (Death)
  Sender: FDA-Public Use
  Company Number: A0892155A

PATIENT
  Sex: Male

DRUGS (1)
  1. AVANDIA [Suspect]
     Dates: start: 19990601, end: 20081001

REACTIONS (1)
  - DEATH [None]
